FAERS Safety Report 21045998 (Version 1)
Quarter: 2022Q3

REPORT INFORMATION
  Report Type: Spontaneous
  Country: GB (occurrence: GB)
  Receive Date: 20220706
  Receipt Date: 20220706
  Transmission Date: 20221027
  Serious: Yes (Hospitalization)
  Sender: FDA-Public Use
  Company Number: GB-NOVOPROD-929975

PATIENT
  Age: 20 Year
  Sex: Female

DRUGS (4)
  1. METFORMIN [Suspect]
     Active Substance: METFORMIN HYDROCHLORIDE
     Indication: Product used for unknown indication
     Dosage: UNK
     Route: 065
  2. RYBELSUS [Suspect]
     Active Substance: SEMAGLUTIDE
     Indication: Product used for unknown indication
     Dosage: 7 MILLIGRAM
     Route: 065
  3. RYBELSUS [Suspect]
     Active Substance: SEMAGLUTIDE
     Dosage: 3 MILLIGRAM
     Route: 065
  4. RYBELSUS [Suspect]
     Active Substance: SEMAGLUTIDE
     Dosage: 14 MILLIGRAM
     Route: 065

REACTIONS (2)
  - Vomiting [Unknown]
  - Weight decreased [Unknown]
